FAERS Safety Report 5081297-4 (Version None)
Quarter: 2006Q3

REPORT INFORMATION
  Report Type: 
  Country: None (occurrence: None)
  Receive Date: 20060816
  Receipt Date: 20060808
  Transmission Date: 20061208
  Serious: Yes (Death)
  Sender: FDA-Public Use
  Company Number: CL-NOVOPROD-256105

PATIENT
  Sex: Male

DRUGS (1)
  1. ACTRAPID [Suspect]
     Indication: DIABETES MELLITUS INSULIN-DEPENDENT

REACTIONS (1)
  - DEATH [None]
